FAERS Safety Report 5716785-8 (Version None)
Quarter: 2008Q2

REPORT INFORMATION
  Report Type: 
  Country: None (occurrence: None)
  Receive Date: 20080424
  Receipt Date: 20070711
  Transmission Date: 20081010
  Serious: No
  Sender: FDA-Public Use
  Company Number: US-BAYER-200712140BWH

PATIENT
  Age: 83 Year
  Sex: Male

DRUGS (6)
  1. LEVITRA [Suspect]
     Indication: ERECTILE DYSFUNCTION
     Dosage: TOTAL DAILY DOSE: 10 MG  UNIT DOSE: 10 MG
     Route: 048
     Dates: start: 20070701
  2. INDAPAMIDE [Concomitant]
  3. PROZAC [Concomitant]
  4. OMEPRAZOLE [Concomitant]
  5. FELODIPINE [Concomitant]
  6. FOSINOPRIL NA [Concomitant]

REACTIONS (2)
  - ERECTILE DYSFUNCTION [None]
  - RASH PRURITIC [None]
